FAERS Safety Report 21356122 (Version 5)
Quarter: 2025Q3

REPORT INFORMATION
  Report Type: 
  Country: EU (occurrence: EU)
  Receive Date: 20220920
  Receipt Date: 20250710
  Transmission Date: 20251020
  Serious: Yes (Other)
  Sender: JAZZ
  Company Number: EU-GW PHARMA-2022-FR-029713

PATIENT

DRUGS (7)
  1. EPIDIOLEX [Interacting]
     Active Substance: CANNABIDIOL
     Indication: Product used for unknown indication
  2. TACROLIMUS [Interacting]
     Active Substance: TACROLIMUS
     Indication: Renal transplant
  3. TACROLIMUS [Interacting]
     Active Substance: TACROLIMUS
     Indication: Immunosuppressant drug therapy
  4. MYCOPHENOLIC ACID [Suspect]
     Active Substance: MYCOPHENOLIC ACID
     Indication: Immunosuppressant drug therapy
  5. PREDNISONE [Suspect]
     Active Substance: PREDNISONE
     Indication: Renal transplant
  6. PREDNISONE [Suspect]
     Active Substance: PREDNISONE
     Indication: Immunosuppressant drug therapy
  7. BISOPROLOL [Concomitant]
     Active Substance: BISOPROLOL
     Indication: Hypertension

REACTIONS (3)
  - Microsporidia infection [Unknown]
  - Drug interaction [Recovering/Resolving]
  - Immunosuppressant drug level increased [Recovering/Resolving]
